FAERS Safety Report 8785837 (Version 1)
Quarter: 2012Q4

REPORT INFORMATION
  Report Type: 
  Country: US (occurrence: US)
  Receive Date: 20120914
  Receipt Date: 20120914
  Transmission Date: 20130627
  Serious: No
  Sender: FDA-Public Use
  Company Number: US-TEVA-358071USA

PATIENT
  Age: 62 Year
  Sex: Male
  Weight: 77.18 kg

DRUGS (4)
  1. NUVIGIL [Suspect]
     Indication: FATIGUE
     Route: 048
     Dates: start: 20120831, end: 20120903
  2. LEXAPRO [Concomitant]
     Indication: DEPRESSION
     Dosage: 20 Milligram Daily;
     Route: 048
  3. ALPRAZOLAM [Concomitant]
     Indication: ANXIETY
     Route: 048
     Dates: start: 2008
  4. NIACIN [Concomitant]
     Indication: SUPPLEMENTATION THERAPY
     Route: 048

REACTIONS (4)
  - Pain in extremity [Recovering/Resolving]
  - Joint swelling [Unknown]
  - Gait disturbance [Recovering/Resolving]
  - Arthralgia [Recovering/Resolving]
